FAERS Safety Report 15562105 (Version 1)
Quarter: 2018Q4

REPORT INFORMATION
  Report Type: Spontaneous
  Country: BE (occurrence: US)
  Receive Date: 20181024
  Receipt Date: 20181024
  Transmission Date: 20190205
  Serious: Yes (Hospitalization)
  Sender: FDA-Public Use
  Company Number: None

PATIENT
  Age: 47 Year
  Sex: Male
  Weight: 71.2 kg

DRUGS (3)
  1. IFOSFAMIDE. [Suspect]
     Active Substance: IFOSFAMIDE
     Dates: end: 20181010
  2. CISPLATIN. [Suspect]
     Active Substance: CISPLATIN
     Dates: end: 20181010
  3. TAXOL [Suspect]
     Active Substance: PACLITAXEL
     Dates: end: 20181010

REACTIONS (5)
  - Administration site extravasation [None]
  - Procedural complication [None]
  - Product dose omission [None]
  - Stress [None]
  - Anxiety [None]

NARRATIVE: CASE EVENT DATE: 20181010
